FAERS Safety Report 19429447 (Version 1)
Quarter: 2021Q2

REPORT INFORMATION
  Report Type: Spontaneous
  Country: US (occurrence: US)
  Receive Date: 20210617
  Receipt Date: 20210617
  Transmission Date: 20210717
  Serious: No
  Sender: FDA-Public Use
  Company Number: US-BAYER-2021-159569

PATIENT
  Age: 49 Year
  Sex: Female

DRUGS (1)
  1. CLIMARA PRO [Suspect]
     Active Substance: ESTRADIOL\LEVONORGESTREL
     Indication: HOT FLUSH
     Dosage: UNK
     Route: 062
     Dates: start: 20210514

REACTIONS (5)
  - Wrong technique in product usage process [None]
  - Drug ineffective [None]
  - Product shape issue [None]
  - Hot flush [Not Recovered/Not Resolved]
  - Device adhesion issue [None]

NARRATIVE: CASE EVENT DATE: 20210615
